FAERS Safety Report 11603205 (Version 2)
Quarter: 2015Q4

REPORT INFORMATION
  Report Type: Report from Study
  Country: FR (occurrence: FR)
  Receive Date: 20151006
  Receipt Date: 20151116
  Transmission Date: 20160304
  Serious: No
  Sender: FDA-Public Use
  Company Number: FR-BRISTOL-MYERS SQUIBB COMPANY-BMS-2015-009014

PATIENT
  Age: 51 Year
  Sex: Male
  Weight: 71 kg

DRUGS (13)
  1. SOFOSBUVIR [Concomitant]
     Active Substance: SOFOSBUVIR
     Indication: CHRONIC HEPATITIS C
     Dosage: 400 MG, QD
     Route: 048
     Dates: start: 20141014
  2. ADVAGRAF [Concomitant]
     Active Substance: TACROLIMUS
     Indication: PRODUCT USED FOR UNKNOWN INDICATION
     Dosage: 7 MG, UNK
     Route: 065
     Dates: end: 20150203
  3. EMTRICITABINA [Concomitant]
     Indication: HIV INFECTION
     Route: 065
  4. XANAX [Concomitant]
     Active Substance: ALPRAZOLAM
     Indication: PRODUCT USED FOR UNKNOWN INDICATION
     Route: 065
  5. PROGRAF [Concomitant]
     Active Substance: TACROLIMUS\TACROLIMUS ANHYDROUS
     Indication: PRODUCT USED FOR UNKNOWN INDICATION
     Dosage: 7 MG, UNK
     Route: 065
     Dates: start: 20121025
  6. URSOLVAN [Concomitant]
     Active Substance: URSODIOL
     Indication: PRODUCT USED FOR UNKNOWN INDICATION
     Dosage: 800 MG, UNK
     Route: 065
     Dates: start: 20121025
  7. ETRAVIRINA [Concomitant]
     Indication: HIV INFECTION
     Route: 065
  8. DACLATASVIR DIHYDROCHLORIDE [Suspect]
     Active Substance: DACLATASVIR DIHYDROCHLORIDE
     Indication: CHRONIC HEPATITIS C
     Dosage: 90 MG, QD
     Route: 048
     Dates: start: 20141014
  9. CELLCEPT [Concomitant]
     Active Substance: MYCOPHENOLATE MOFETIL\MYCOPHENOLATE MOFETIL HYDROCHLORIDE
     Indication: PRODUCT USED FOR UNKNOWN INDICATION
     Dosage: 1500 MG, UNK
     Route: 065
     Dates: start: 20121025
  10. ADVAGRAF [Concomitant]
     Active Substance: TACROLIMUS
     Dosage: 4 MG, UNK
     Route: 065
     Dates: start: 20150203
  11. PLAVIX [Concomitant]
     Active Substance: CLOPIDOGREL BISULFATE
     Indication: PERIPHERAL ARTERIAL OCCLUSIVE DISEASE
     Dosage: 75 MG, UNK
     Route: 065
  12. PLAVIX [Concomitant]
     Active Substance: CLOPIDOGREL BISULFATE
     Indication: CORONARY ARTERY BYPASS
  13. RALTEGRAVIR. [Concomitant]
     Active Substance: RALTEGRAVIR
     Indication: HIV INFECTION
     Route: 065

REACTIONS (8)
  - Hypercreatinaemia [Recovered/Resolved]
  - Overdose [Unknown]
  - Sleep disorder [Unknown]
  - Influenza [Unknown]
  - Gastroenteritis [Recovered/Resolved]
  - Headache [Unknown]
  - Arthralgia [Unknown]
  - Skin lesion [Unknown]

NARRATIVE: CASE EVENT DATE: 201410
